FAERS Safety Report 20517041 (Version 1)
Quarter: 2022Q1

REPORT INFORMATION
  Report Type: Report from Study
  Country: US (occurrence: US)
  Receive Date: 20220225
  Receipt Date: 20220225
  Transmission Date: 20220423
  Serious: Yes (Death)
  Sender: FDA-Public Use
  Company Number: US-JNJFOC-20220235844

PATIENT
  Age: 31 Year
  Sex: Female
  Weight: 81.811 kg

DRUGS (1)
  1. SPRAVATO [Suspect]
     Active Substance: ESKETAMINE
     Indication: Depression
     Dates: start: 20211127, end: 20211207

REACTIONS (2)
  - Death [Fatal]
  - Post-traumatic stress disorder [Unknown]
